FAERS Safety Report 6965227-3 (Version None)
Quarter: 2010Q3

REPORT INFORMATION
  Report Type: 
  Country: None (occurrence: None)
  Receive Date: 20100903
  Receipt Date: 20100820
  Transmission Date: 20110219
  Serious: Yes (Other)
  Sender: FDA-Public Use
  Company Number: PHHY2010DE45013

PATIENT
  Sex: Female

DRUGS (6)
  1. DIOVAN [Suspect]
     Dosage: 80 MG PER DAY
     Route: 048
  2. TIMOLOL [Suspect]
     Indication: GLAUCOMA
  3. DORZOLAMIDE [Concomitant]
     Indication: GLAUCOMA
  4. LATANOPROST [Concomitant]
     Indication: GLAUCOMA
  5. BRINZOLAMIDE [Concomitant]
     Indication: GLAUCOMA
  6. PILOCARPINE HYDROCHLORIDE [Concomitant]
     Indication: GLAUCOMA

REACTIONS (3)
  - GLAUCOMA [None]
  - GLAUCOMA SURGERY [None]
  - INTRAOCULAR PRESSURE INCREASED [None]
